FAERS Safety Report 14342189 (Version 1)
Quarter: 2018Q1

REPORT INFORMATION
  Report Type: Spontaneous
  Country: US (occurrence: US)
  Receive Date: 20180102
  Receipt Date: 20180102
  Transmission Date: 20180509
  Serious: No
  Sender: FDA-Public Use
  Company Number: US-TEVA-2017-US-839573

PATIENT
  Age: 78 Year
  Sex: Female

DRUGS (1)
  1. TRAZODONE [Suspect]
     Active Substance: TRAZODONE HYDROCHLORIDE
     Dosage: AT BED TIME

REACTIONS (17)
  - Panic attack [Unknown]
  - Insomnia [Unknown]
  - Urinary incontinence [Unknown]
  - Constipation [Unknown]
  - Anxiety [Unknown]
  - Dizziness [Unknown]
  - Restlessness [Unknown]
  - Ocular hyperaemia [Unknown]
  - Eye swelling [Unknown]
  - Depression [Unknown]
  - Mood altered [Unknown]
  - Abdominal pain upper [Unknown]
  - Feeling abnormal [Unknown]
  - Irritability [Unknown]
  - Anger [Unknown]
  - Visual impairment [Unknown]
  - Diarrhoea [Unknown]
